FAERS Safety Report 6935717-8 (Version None)
Quarter: 2010Q3

REPORT INFORMATION
  Report Type: 
  Country: None (occurrence: None)
  Receive Date: 20100823
  Receipt Date: 20090217
  Transmission Date: 20110219
  Serious: Yes (Other)
  Sender: FDA-Public Use
  Company Number: CN-BAYER-201036055GPV

PATIENT
  Age: 38 Year
  Sex: Male

DRUGS (2)
  1. NEXAVAR [Suspect]
     Indication: HEPATIC NEOPLASM MALIGNANT
     Dosage: UNIT DOSE: 400 MG
     Route: 048
  2. NEXAVAR [Suspect]
     Dosage: UNIT DOSE: 400 MG
     Route: 048
     Dates: start: 20081119

REACTIONS (6)
  - DECREASED APPETITE [None]
  - DIARRHOEA [None]
  - PALMAR-PLANTAR ERYTHRODYSAESTHESIA SYNDROME [None]
  - PHARYNGEAL ULCERATION [None]
  - PLEURAL EFFUSION [None]
  - VOMITING [None]
